FAERS Safety Report 6873789-X (Version None)
Quarter: 2010Q3

REPORT INFORMATION
  Report Type: 
  Country: None (occurrence: None)
  Receive Date: 20100723
  Receipt Date: 20090311
  Transmission Date: 20110219
  Serious: No
  Sender: FDA-Public Use
  Company Number: US-PFIZER INC-2009185535

PATIENT
  Sex: Female
  Weight: 72.574 kg

DRUGS (2)
  1. CHANTIX [Suspect]
     Indication: SMOKING CESSATION THERAPY
     Dosage: 1 MG, 2X/DAY
     Route: 048
     Dates: start: 20081030, end: 20081101
  2. PREVACID [Concomitant]
     Dosage: UNK

REACTIONS (1)
  - HYPERSOMNIA [None]
